FAERS Safety Report 15120283 (Version 1)
Quarter: 2018Q3

REPORT INFORMATION
  Report Type: Spontaneous
  Country: US (occurrence: US)
  Receive Date: 20180613
  Receipt Date: 20180613
  Transmission Date: 20181010
  Serious: Yes (Other)
  Sender: FDA-Public Use
  Company Number: None

PATIENT
  Age: 83 Year
  Sex: Female
  Weight: 55.35 kg

DRUGS (4)
  1. CAPECITABINE. [Suspect]
     Active Substance: CAPECITABINE
     Indication: BREAST CANCER
     Route: 048
     Dates: start: 20180216
  2. VITAMIN D [Concomitant]
     Active Substance: CHOLECALCIFEROL
  3. LACTULOSE. [Concomitant]
     Active Substance: LACTULOSE
  4. ELIQUIS [Concomitant]
     Active Substance: APIXABAN

REACTIONS (4)
  - Dry skin [None]
  - Peripheral swelling [None]
  - Rash [None]
  - Pain [None]
